FAERS Safety Report 6369910-2 (Version None)
Quarter: 2009Q3

REPORT INFORMATION
  Report Type: 
  Country: None (occurrence: None)
  Receive Date: 20090923
  Receipt Date: 20080519
  Transmission Date: 20100115
  Serious: Yes (Other)
  Sender: FDA-Public Use
  Company Number: US-ASTRAZENECA-2006UW10809

PATIENT
  Age: 17695 Day
  Sex: Female
  Weight: 72.6 kg

DRUGS (10)
  1. SEROQUEL [Suspect]
     Indication: ANXIETY
     Dosage: 25 MG - 600 MG
     Route: 048
     Dates: start: 20000628
  2. SEROQUEL [Suspect]
     Indication: DEPRESSION
     Dosage: 25 MG - 600 MG
     Route: 048
     Dates: start: 20000628
  3. SEROQUEL [Suspect]
     Indication: BIPOLAR DISORDER
     Dosage: 25 MG - 600 MG
     Route: 048
     Dates: start: 20000628
  4. SEROQUEL [Suspect]
     Route: 048
     Dates: start: 20000101, end: 20060101
  5. SEROQUEL [Suspect]
     Route: 048
     Dates: start: 20000101, end: 20060101
  6. SEROQUEL [Suspect]
     Route: 048
     Dates: start: 20000101, end: 20060101
  7. LITHIUM [Concomitant]
     Dosage: 900-1200 MG
     Route: 048
     Dates: start: 19961202
  8. TRAZODONE [Concomitant]
     Dosage: 50-200 MG
     Route: 048
     Dates: start: 19961202
  9. RISPERIDONE [Concomitant]
     Dates: start: 19971002
  10. DEPAKOTE [Concomitant]
     Route: 048
     Dates: start: 19960205

REACTIONS (2)
  - DIABETES MELLITUS [None]
  - DIABETIC KETOACIDOSIS [None]
